FAERS Safety Report 23851214 (Version 2)
Quarter: 2024Q2

REPORT INFORMATION
  Report Type: Spontaneous
  Country: US (occurrence: US)
  Receive Date: 20240514
  Receipt Date: 20240529
  Transmission Date: 20240716
  Serious: Yes (Hospitalization, Other)
  Sender: FDA-Public Use
  Company Number: US-BRISTOL-MYERS SQUIBB COMPANY-2024-070765

PATIENT
  Age: 85 Year
  Sex: Female

DRUGS (2)
  1. ZEPOSIA [Suspect]
     Active Substance: OZANIMOD HYDROCHLORIDE
     Indication: Colitis ulcerative
     Dosage: STARTER PACK
     Route: 048
     Dates: start: 202402
  2. ZEPOSIA [Suspect]
     Active Substance: OZANIMOD HYDROCHLORIDE
     Dosage: STARTER KIT
     Route: 048
     Dates: start: 202402

REACTIONS (5)
  - Hallucination [Unknown]
  - Disorientation [Unknown]
  - Memory impairment [Unknown]
  - Headache [Unknown]
  - Urinary tract infection [Unknown]
